FAERS Safety Report 7461269-2 (Version None)
Quarter: 2011Q2

REPORT INFORMATION
  Report Type: 
  Country: None (occurrence: None)
  Receive Date: 20110506
  Receipt Date: 20110428
  Transmission Date: 20111010
  Serious: Yes (Hospitalization)
  Sender: FDA-Public Use
  Company Number: 173004

PATIENT
  Age: 45 Year
  Sex: Female
  Weight: 106 kg

DRUGS (6)
  1. RELAFEN [Concomitant]
  2. METHYLPREDNISOLONE [Concomitant]
  3. TORADOL [Concomitant]
  4. AVONEX [Suspect]
     Route: 030
     Dates: start: 20030101
  5. AVONEX [Suspect]
     Indication: MULTIPLE SCLEROSIS
     Route: 030
     Dates: start: 19960101, end: 20030101
  6. ULTRAM [Concomitant]

REACTIONS (14)
  - PROCEDURAL PAIN [None]
  - MULTIPLE SCLEROSIS RELAPSE [None]
  - OSTEONECROSIS [None]
  - HYPERTENSION [None]
  - SEASONAL ALLERGY [None]
  - ANKLE FRACTURE [None]
  - OEDEMA PERIPHERAL [None]
  - FATIGUE [None]
  - MUSCULAR WEAKNESS [None]
  - INFLUENZA LIKE ILLNESS [None]
  - FLUSHING [None]
  - ASTHENIA [None]
  - ARTHRITIS [None]
  - BONE DISORDER [None]
